FAERS Safety Report 18406770 (Version 1)
Quarter: 2020Q4

REPORT INFORMATION
  Report Type: Spontaneous
  Country: US (occurrence: US)
  Receive Date: 20201021
  Receipt Date: 20201021
  Transmission Date: 20210114
  Serious: No
  Sender: FDA-Public Use
  Company Number: US-AJANTA PHARMA USA INC.-2092973

PATIENT
  Sex: Female

DRUGS (1)
  1. RISPERIDONE. [Suspect]
     Active Substance: RISPERIDONE
     Route: 065

REACTIONS (3)
  - Diabetes mellitus [Unknown]
  - Weight increased [Unknown]
  - Cardiac disorder [Not Recovered/Not Resolved]
